FAERS Safety Report 4749146-9 (Version None)
Quarter: 2005Q3

REPORT INFORMATION
  Report Type: 
  Country: None (occurrence: None)
  Receive Date: 20050817
  Receipt Date: 20050809
  Transmission Date: 20060218
  Serious: Yes (Other)
  Sender: FDA-Public Use
  Company Number: 216745

PATIENT
  Age: 74 Year
  Sex: Female

DRUGS (5)
  1. HERCEPTIN [Suspect]
     Indication: BREAST CANCER
     Dosage: 120 MG, 1/WEEK, INTRAVENOUS
     Route: 042
     Dates: start: 20040929, end: 20041006
  2. TAXOL [Suspect]
     Indication: BREAST CANCER
     Dosage: 140 MG, 1/WEEK, INTRAVENOUS
     Route: 042
     Dates: start: 20040929, end: 20041006
  3. PREDNISONE [Concomitant]
  4. GRANISETRON  HCL [Concomitant]
  5. DIMETINDENE (DIMETHINDE MALEATE) [Concomitant]

REACTIONS (5)
  - ANAEMIA [None]
  - LEUKOPENIA [None]
  - ONYCHOLYSIS [None]
  - ONYCHOMADESIS [None]
  - PARONYCHIA [None]
